FAERS Safety Report 22973997 (Version 4)
Quarter: 2024Q1

REPORT INFORMATION
  Report Type: Report from Study
  Country: US (occurrence: US)
  Receive Date: 20230922
  Receipt Date: 20240109
  Transmission Date: 20240409
  Serious: No
  Sender: FDA-Public Use
  Company Number: US-002147023-NVSC2023US203163

PATIENT
  Sex: Female

DRUGS (1)
  1. ENTRESTO [Suspect]
     Active Substance: SACUBITRIL\VALSARTAN
     Indication: Product used for unknown indication
     Dosage: 1 DOSAGE FORM, BID (97 MG)
     Route: 065

REACTIONS (5)
  - Memory impairment [Unknown]
  - Malaise [Unknown]
  - Ankle fracture [Unknown]
  - Decreased activity [Unknown]
  - Cough [Unknown]
